FAERS Safety Report 8161794-5 (Version None)
Quarter: 2012Q1

REPORT INFORMATION
  Report Type: 
  Country: None (occurrence: None)
  Receive Date: 20120224
  Receipt Date: 20120213
  Transmission Date: 20120608
  Serious: Yes (Death)
  Sender: FDA-Public Use
  Company Number: US-MYLANLABS-2011S1014897

PATIENT
  Age: 60 Year
  Sex: Female
  Weight: 77.11 kg

DRUGS (21)
  1. NITROGLYCERIN [Concomitant]
     Dosage: PUMP
  2. PAROXETINE [Concomitant]
  3. FENOFIBRATE [Concomitant]
     Indication: BLOOD TRIGLYCERIDES
  4. NOVOLOG [Concomitant]
     Dosage: UNITS/ML
     Route: 058
  5. WARFARIN SODIUM [Concomitant]
  6. ALPRAZOLAM [Concomitant]
  7. GABAPENTIN [Concomitant]
  8. METOPROLOL SUCCINATE [Concomitant]
  9. VYTORIN [Concomitant]
     Dosage: 10-80MG
  10. FENTANYL-100 [Suspect]
     Indication: BACK PAIN
     Dosage: CHANGE Q3D
     Route: 062
  11. FELDENE [Concomitant]
  12. LANTUS [Concomitant]
     Dosage: UNITS/ML
     Route: 058
  13. BENAZEPRIL HYDROCHLORIDE [Concomitant]
  14. BUPROPION HYDROCHLORIDE [Concomitant]
  15. MELOXICAM [Concomitant]
  16. ADVAIR DISKUS 100/50 [Concomitant]
     Dosage: 250/50 UG/DOSE
     Route: 055
  17. ASPIRIN [Concomitant]
  18. FUROSEMIDE [Concomitant]
  19. NEXIUM [Concomitant]
  20. OXYCODONE/ACETAMINOPHEN [Concomitant]
     Indication: PAIN
     Dosage: 10MG/325MG 4 TIMES DAILY AS NEEDED
  21. PROAIR HFA [Concomitant]
     Dosage: ONE TO TWO PUFFS EVERY 4-6 HOURS AS NEEDED
     Route: 055

REACTIONS (5)
  - OVERDOSE [None]
  - TOXICITY TO VARIOUS AGENTS [None]
  - DIABETES MELLITUS INADEQUATE CONTROL [None]
  - CARDIOMEGALY [None]
  - WRONG TECHNIQUE IN DRUG USAGE PROCESS [None]
